FAERS Safety Report 4742395-5 (Version None)
Quarter: 2005Q3

REPORT INFORMATION
  Report Type: 
  Country: None (occurrence: None)
  Receive Date: 20050808
  Receipt Date: 20050725
  Transmission Date: 20060218
  Serious: Yes (Other)
  Sender: FDA-Public Use
  Company Number: 2004116257

PATIENT
  Age: 80 Year
  Sex: Female
  Weight: 74.8435 kg

DRUGS (2)
  1. DETROL LA [Suspect]
     Indication: INCONTINENCE
     Dosage: SEE IMAGE
     Route: 048
     Dates: start: 20020101
  2. CHONDROITIN/GLUCOSAMINE (CHONDROITIN, GLUCOSAMINE) [Concomitant]

REACTIONS (8)
  - DRUG DOSE OMISSION [None]
  - DRUG EFFECT DECREASED [None]
  - DRY MOUTH [None]
  - FOOT FRACTURE [None]
  - IMPAIRED HEALING [None]
  - INCORRECT DOSE ADMINISTERED [None]
  - JOINT INJURY [None]
  - OSTEOPOROSIS [None]
